FAERS Safety Report 8384989 (Version 3)
Quarter: 2013Q4

REPORT INFORMATION
  Report Type: Report from Study
  Country: US (occurrence: US)
  Receive Date: 20120202
  Receipt Date: 20131119
  Transmission Date: 20140711
  Serious: Yes (Other)
  Sender: FDA-Public Use
  Company Number: US-ELI_LILLY_AND_COMPANY-US201201003780

PATIENT
  Age: 62 Year
  Sex: Male

DRUGS (2)
  1. TERIPARATIDE [Suspect]
     Indication: OSTEOPOROSIS
     Dosage: 20 UG, QD
     Route: 065
     Dates: start: 20111228
  2. TERIPARATIDE [Suspect]
     Dosage: 20 UG, QD
     Route: 065

REACTIONS (12)
  - Grand mal convulsion [Unknown]
  - Tongue biting [Unknown]
  - Pain in extremity [Unknown]
  - Balance disorder [Unknown]
  - Muscular weakness [Unknown]
  - Musculoskeletal discomfort [Unknown]
  - Limb discomfort [Unknown]
  - Injection site haemorrhage [Not Recovered/Not Resolved]
  - Arthralgia [Not Recovered/Not Resolved]
  - Pain [Unknown]
  - Frustration [Unknown]
  - Muscle spasms [Unknown]
